FAERS Safety Report 22779581 (Version 11)
Quarter: 2024Q4

REPORT INFORMATION
  Report Type: Spontaneous
  Country: US (occurrence: US)
  Receive Date: 20230802
  Receipt Date: 20241226
  Transmission Date: 20250114
  Serious: Yes (Other)
  Sender: CSL BEHRING
  Company Number: US-BEH-2023161689

PATIENT
  Age: 23 Year
  Sex: Male

DRUGS (12)
  1. IDELVION [Suspect]
     Active Substance: COAGULATION FACTOR IX RECOMBINANT HUMAN
     Indication: Factor IX deficiency
     Dosage: 3000 INTERNATIONAL UNIT, QW
     Route: 042
     Dates: start: 202303
  2. IDELVION [Suspect]
     Active Substance: COAGULATION FACTOR IX RECOMBINANT HUMAN
     Indication: Factor IX deficiency
     Dosage: 3000 INTERNATIONAL UNIT, QW
     Route: 042
     Dates: start: 202303
  3. IDELVION [Suspect]
     Active Substance: COAGULATION FACTOR IX RECOMBINANT HUMAN
     Dosage: 3000 INTERNATIONAL UNIT, PRN FOR BLEEDING
     Route: 042
     Dates: start: 202303
  4. IDELVION [Suspect]
     Active Substance: COAGULATION FACTOR IX RECOMBINANT HUMAN
     Dosage: 3000 INTERNATIONAL UNIT, PRN FOR BLEEDING
     Route: 042
     Dates: start: 202303
  5. IDELVION [Suspect]
     Active Substance: COAGULATION FACTOR IX RECOMBINANT HUMAN
     Dosage: 4000 IU, QW
     Route: 042
     Dates: start: 202303
  6. IDELVION [Suspect]
     Active Substance: COAGULATION FACTOR IX RECOMBINANT HUMAN
     Dosage: 4000 IU, QW
     Route: 042
     Dates: start: 202303
  7. IDELVION [Suspect]
     Active Substance: COAGULATION FACTOR IX RECOMBINANT HUMAN
     Indication: Factor IX deficiency
     Dosage: 4000 (3600-4400) INTERNATIONAL UNIT, QW
     Route: 042
     Dates: start: 201606
  8. IDELVION [Suspect]
     Active Substance: COAGULATION FACTOR IX RECOMBINANT HUMAN
     Indication: Factor IX deficiency
     Dosage: 4000 (3600-4400) INTERNATIONAL UNIT, QW
     Route: 042
     Dates: start: 201606
  9. IDELVION [Suspect]
     Active Substance: COAGULATION FACTOR IX RECOMBINANT HUMAN
     Dosage: 4000 (3600-4400) INTERNATIONAL UNIT, PRN
     Route: 042
     Dates: start: 201606
  10. IDELVION [Suspect]
     Active Substance: COAGULATION FACTOR IX RECOMBINANT HUMAN
     Dosage: 4000 (3600-4400) INTERNATIONAL UNIT, PRN
     Route: 042
     Dates: start: 201606
  11. SODIUM CHLORIDE [Concomitant]
     Active Substance: SODIUM CHLORIDE
  12. HUMATE-P [Concomitant]
     Active Substance: HUMAN COAGULATION FACTOR VIII/VON WILLEBRAND FACTOR COMPLEX
     Indication: Prophylaxis
     Dosage: UNK, PRN

REACTIONS (17)
  - Haemorrhage [Unknown]
  - Haemarthrosis [Recovered/Resolved]
  - Haemarthrosis [Recovered/Resolved]
  - Haemorrhage [Unknown]
  - Haemarthrosis [Recovering/Resolving]
  - Haemarthrosis [Recovered/Resolved]
  - Haemarthrosis [Unknown]
  - Haemorrhage [Not Recovered/Not Resolved]
  - Haemorrhage [Unknown]
  - Haemorrhage [Unknown]
  - Haemarthrosis [Unknown]
  - Haemarthrosis [Unknown]
  - Bone cyst [Unknown]
  - Ankle operation [Recovering/Resolving]
  - Joint swelling [Recovering/Resolving]
  - Joint injury [Unknown]
  - Product use issue [Unknown]

NARRATIVE: CASE EVENT DATE: 20230722
